FAERS Safety Report 5405037-1 (Version None)
Quarter: 2007Q3

REPORT INFORMATION
  Report Type: 
  Country: None (occurrence: None)
  Receive Date: 20070803
  Receipt Date: 20070620
  Transmission Date: 20080115
  Serious: Yes (Death, Other)
  Sender: FDA-Public Use
  Company Number: FR-BRISTOL-MYERS SQUIBB COMPANY-13865258

PATIENT
  Age: 71 Year
  Sex: Male

DRUGS (16)
  1. LYSODREN [Suspect]
     Indication: ADRENOCORTICAL CARCINOMA
     Route: 048
     Dates: start: 20070615, end: 20070617
  2. MORPHINE [Concomitant]
     Indication: ABDOMINAL PAIN
     Dates: start: 20070612
  3. ZOVIRAX [Concomitant]
     Indication: HERPES SIMPLEX
     Dates: start: 20070614
  4. OMEPRAZOLE [Concomitant]
     Route: 048
     Dates: start: 20070615
  5. PRIMPERAN INJ [Concomitant]
  6. SPASFON [Concomitant]
  7. CALCIUM CHLORIDE [Concomitant]
  8. COLECALCIFEROL [Concomitant]
  9. DOLIPRANE [Concomitant]
  10. SOLU-MEDROL [Concomitant]
  11. TRANSDERMAL NICOTINE [Concomitant]
  12. LOVENOX [Concomitant]
  13. DURAGESIC-100 [Concomitant]
  14. DUPHALAC [Concomitant]
  15. MUCOMYST [Concomitant]
  16. BRICANYL [Concomitant]
     Route: 055

REACTIONS (11)
  - ACUTE RESPIRATORY FAILURE [None]
  - ADRENAL INSUFFICIENCY [None]
  - CARDIAC ARREST [None]
  - CONFUSIONAL STATE [None]
  - HEPATIC FAILURE [None]
  - HYPERTENSION [None]
  - MALIGNANT NEOPLASM PROGRESSION [None]
  - MULTI-ORGAN FAILURE [None]
  - RENAL FAILURE ACUTE [None]
  - SHOCK [None]
  - VENTRICULAR FIBRILLATION [None]
